FAERS Safety Report 4676527-4 (Version None)
Quarter: 2005Q2

REPORT INFORMATION
  Report Type: 
  Country: None (occurrence: None)
  Receive Date: 20050526
  Receipt Date: 20050526
  Transmission Date: 20051028
  Serious: No
  Sender: FDA-Public Use
  Company Number: None

PATIENT
  Age: 78 Year
  Sex: Female

DRUGS (12)
  1. QUETIAPINE [Suspect]
     Dosage: 75MG BID
  2. ASPIRIN [Concomitant]
  3. CALCIUM CARBONATE [Concomitant]
  4. DARBEPOETIN [Concomitant]
  5. DOCUSATE [Concomitant]
  6. FERROUS SULFATE [Concomitant]
  7. FUROSEMIDE [Concomitant]
  8. LEVOTHYROXINE SODIUM [Concomitant]
  9. LISINOPRIL [Concomitant]
  10. METOPROLOL [Concomitant]
  11. PANTOPRAZOLE [Concomitant]
  12. SIMVASTATIN [Concomitant]

REACTIONS (1)
  - LEUKOPENIA [None]
